FAERS Safety Report 10413344 (Version 5)
Quarter: 2018Q2

REPORT INFORMATION
  Report Type: Spontaneous
  Country: US (occurrence: US)
  Receive Date: 20140827
  Receipt Date: 20180525
  Transmission Date: 20180711
  Serious: Yes (Hospitalization, Other)
  Sender: FDA-Public Use
  Company Number: US-GLAXOSMITHKLINE-A0952711A

PATIENT
  Age: 68 Year
  Sex: Female

DRUGS (46)
  1. PREDNISONE. [Suspect]
     Active Substance: PREDNISONE
     Indication: PRODUCT USED FOR UNKNOWN INDICATION
     Dosage: 40 MG, U
     Route: 065
  2. ZYRTEC [Concomitant]
     Active Substance: CETIRIZINE HYDROCHLORIDE
  3. TYLENOL [Concomitant]
     Active Substance: ACETAMINOPHEN
  4. LASIX [Concomitant]
     Active Substance: FUROSEMIDE
  5. MAGNESIUM GLUCONATE [Concomitant]
     Active Substance: MAGNESIUM GLUCONATE
  6. VOLTAREN [Concomitant]
     Active Substance: DICLOFENAC SODIUM
  7. AMITRIPTYLINE [Concomitant]
     Active Substance: AMITRIPTYLINE
  8. PRAVASTATIN. [Concomitant]
     Active Substance: PRAVASTATIN
  9. OXYGEN. [Concomitant]
     Active Substance: OXYGEN
  10. PREDNISONE. [Concomitant]
     Active Substance: PREDNISONE
  11. ADVAIR HFA [Suspect]
     Active Substance: FLUTICASONE PROPIONATE\SALMETEROL XINAFOATE
     Indication: CHRONIC OBSTRUCTIVE PULMONARY DISEASE
     Dosage: 100/50 UG
  12. MORPHINE [Suspect]
     Active Substance: MORPHINE
     Indication: PRODUCT USED FOR UNKNOWN INDICATION
     Route: 065
  13. SPIRIVA [Concomitant]
     Active Substance: TIOTROPIUM BROMIDE MONOHYDRATE
  14. CITALOPRAM [Concomitant]
     Active Substance: CITALOPRAM HYDROBROMIDE
  15. FLOVENT [Suspect]
     Active Substance: FLUTICASONE PROPIONATE
     Indication: PRODUCT USED FOR UNKNOWN INDICATION
     Dosage: UNK, U
  16. PROAIR HFA [Concomitant]
     Active Substance: ALBUTEROL SULFATE
  17. NEXIUM [Concomitant]
     Active Substance: ESOMEPRAZOLE MAGNESIUM
  18. CYCLOBENZAPRINE. [Concomitant]
     Active Substance: CYCLOBENZAPRINE
  19. ALPRAZOLAM. [Concomitant]
     Active Substance: ALPRAZOLAM
  20. COLCHICINE. [Concomitant]
     Active Substance: COLCHICINE
  21. HYDROCODONE [Concomitant]
     Active Substance: HYDROCODONE
  22. IRON [Concomitant]
     Active Substance: IRON
  23. POTASSIUM CHLORIDE. [Concomitant]
     Active Substance: POTASSIUM CHLORIDE
  24. HYDROCHLOROTHIAZIDE. [Concomitant]
     Active Substance: HYDROCHLOROTHIAZIDE
  25. APIXABAN [Concomitant]
     Active Substance: APIXABAN
  26. ACCOLATE [Concomitant]
     Active Substance: ZAFIRLUKAST
  27. METOPROLOL SUCCINATE. [Concomitant]
     Active Substance: METOPROLOL SUCCINATE
  28. VENLAFAXINE [Concomitant]
     Active Substance: VENLAFAXINE HYDROCHLORIDE
  29. NEURONTIN [Concomitant]
     Active Substance: GABAPENTIN
  30. COMBIVENT [Concomitant]
     Active Substance: ALBUTEROL SULFATE\IPRATROPIUM BROMIDE
  31. ADVAIR HFA [Suspect]
     Active Substance: FLUTICASONE PROPIONATE\SALMETEROL XINAFOATE
     Indication: BRONCHITIS CHRONIC
     Dosage: 500/50 UG
     Route: 055
  32. CELEBREX [Suspect]
     Active Substance: CELECOXIB
     Indication: PRODUCT USED FOR UNKNOWN INDICATION
     Route: 065
  33. CHANTIX [Suspect]
     Active Substance: VARENICLINE TARTRATE
     Indication: TOBACCO USER
  34. THEO [Concomitant]
     Active Substance: THEOPHYLLINE ANHYDROUS
  35. BENZONATATE. [Concomitant]
     Active Substance: BENZONATATE
  36. ADVAIR HFA [Suspect]
     Active Substance: FLUTICASONE PROPIONATE\SALMETEROL XINAFOATE
     Indication: ASTHMA
     Dosage: 1 PUFF(S), QD
     Route: 055
     Dates: start: 20100420
  37. ADVAIR HFA [Suspect]
     Active Substance: FLUTICASONE PROPIONATE\SALMETEROL XINAFOATE
     Indication: EMPHYSEMA
     Dosage: 500/50 UG
  38. WARFARIN [Concomitant]
     Active Substance: WARFARIN
  39. CARISOPRODOL. [Concomitant]
     Active Substance: CARISOPRODOL
  40. CALCIUM WITH VITAMIN D [Concomitant]
     Active Substance: CALCIUM\VITAMIN D
  41. CARTIA XT [Concomitant]
     Active Substance: DILTIAZEM HYDROCHLORIDE
  42. LYRICA [Concomitant]
     Active Substance: PREGABALIN
  43. BACTROBAN [Suspect]
     Active Substance: MUPIROCIN\MUPIROCIN CALCIUM
     Indication: PRODUCT USED FOR UNKNOWN INDICATION
     Dosage: UNK, U
  44. FLONASE [Suspect]
     Active Substance: FLUTICASONE PROPIONATE
     Indication: PRODUCT USED FOR UNKNOWN INDICATION
     Dosage: UNK, U
  45. DOCUSATE SODIUM. [Concomitant]
     Active Substance: DOCUSATE SODIUM
  46. TIZANIDINE. [Concomitant]
     Active Substance: TIZANIDINE

REACTIONS (39)
  - Paralysis [Unknown]
  - Hospitalisation [Unknown]
  - Pharyngeal oedema [Unknown]
  - Scar [Unknown]
  - Dyspnoea [Unknown]
  - Sepsis [Recovering/Resolving]
  - Fall [Unknown]
  - Vomiting projectile [Unknown]
  - Surgery [Unknown]
  - Tremor [Unknown]
  - Aphasia [Unknown]
  - Laceration [Unknown]
  - Lung infection [Unknown]
  - Pneumonia [Unknown]
  - Drug hypersensitivity [Unknown]
  - Pulmonary thrombosis [Unknown]
  - Gastric disorder [Unknown]
  - Amnesia [Unknown]
  - Malaise [Not Recovered/Not Resolved]
  - Drug ineffective [Unknown]
  - Adverse drug reaction [Unknown]
  - Sinusitis [Recovering/Resolving]
  - Weight decreased [Unknown]
  - Skin atrophy [Unknown]
  - Lung disorder [Unknown]
  - Ill-defined disorder [Unknown]
  - Bronchitis [Recovering/Resolving]
  - Ear disorder [Recovering/Resolving]
  - Feeding disorder [Recovered/Resolved]
  - Suture insertion [Unknown]
  - Brain injury [Unknown]
  - Drug intolerance [Unknown]
  - Coma [Recovered/Resolved]
  - Head injury [Unknown]
  - Depression [Unknown]
  - Memory impairment [Unknown]
  - Feeling abnormal [Unknown]
  - Urinary tract infection [Recovered/Resolved]
  - Suicidal ideation [Unknown]

NARRATIVE: CASE EVENT DATE: 2010
